FAERS Safety Report 8622982-4 (Version None)
Quarter: 2012Q3

REPORT INFORMATION
  Report Type: 
  Country: None (occurrence: None)
  Receive Date: 20120827
  Receipt Date: 20120824
  Transmission Date: 20120928
  Serious: Yes (Hospitalization)
  Sender: FDA-Public Use
  Company Number: PHFR2012GB003670

PATIENT
  Sex: Male

DRUGS (4)
  1. CLOZARIL [Suspect]
     Indication: SCHIZOPHRENIA
     Route: 048
     Dates: start: 20101101, end: 20110929
  2. PALIPERIDONE [Concomitant]
  3. OLANZAPINE [Concomitant]
     Route: 048
  4. CLOZARIL [Suspect]
     Dosage: UNK UKN, UNK

REACTIONS (3)
  - MENTAL IMPAIRMENT [None]
  - NEUROLEPTIC MALIGNANT SYNDROME [None]
  - COLON CANCER [None]
